FAERS Safety Report 7274891-3 (Version None)
Quarter: 2011Q1

REPORT INFORMATION
  Report Type: 
  Country: None (occurrence: None)
  Receive Date: 20110204
  Receipt Date: 20110125
  Transmission Date: 20110831
  Serious: Yes (Hospitalization)
  Sender: FDA-Public Use
  Company Number: CH-SANOFI-AVENTIS-2011SA005325

PATIENT
  Age: 71 Year
  Sex: Male

DRUGS (6)
  1. MARCOUMAR [Concomitant]
  2. LISINOPRIL [Concomitant]
  3. ALDACTONE [Concomitant]
  4. MULTAQ [Suspect]
     Route: 048
     Dates: start: 20100101
  5. BELOC [Concomitant]
  6. TORSEMIDE [Concomitant]

REACTIONS (3)
  - CONDITION AGGRAVATED [None]
  - EJECTION FRACTION DECREASED [None]
  - FLUID RETENTION [None]
